FAERS Safety Report 5098886-3 (Version None)
Quarter: 2006Q3

REPORT INFORMATION
  Report Type: 
  Country: None (occurrence: None)
  Receive Date: 20060907
  Receipt Date: 20060901
  Transmission Date: 20061208
  Serious: Yes (Death, Other)
  Sender: FDA-Public Use
  Company Number: PT-AVENTIS-200614629EU

PATIENT

DRUGS (1)
  1. LOVENOX [Suspect]
     Indication: EMBOLISM
     Dosage: DOSE: UNKNOWN DOSE
     Route: 058

REACTIONS (3)
  - ANAPHYLACTIC SHOCK [None]
  - FALL [None]
  - HAEMATOMA [None]
